FAERS Safety Report 7244819-0 (Version None)
Quarter: 2011Q1

REPORT INFORMATION
  Report Type: 
  Country: None (occurrence: None)
  Receive Date: 20110126
  Receipt Date: 20110124
  Transmission Date: 20110831
  Serious: Yes (Other)
  Sender: FDA-Public Use
  Company Number: US-PFIZER INC-2010161802

PATIENT
  Age: 41 Year
  Sex: Male
  Weight: 104 kg

DRUGS (2)
  1. ADVIL [Suspect]
     Indication: ANALGESIC THERAPY
     Dosage: 2 LIQUI-GELS, AS NEEDED
     Route: 048
     Dates: start: 20090101, end: 20091201
  2. ADVIL [Suspect]
     Dosage: UNK
     Route: 048

REACTIONS (7)
  - RETCHING [None]
  - FOREIGN BODY [None]
  - ORAL DISCOMFORT [None]
  - VOMITING [None]
  - PAIN [None]
  - DYSPHAGIA [None]
  - ASPHYXIA [None]
